FAERS Safety Report 15312082 (Version 4)
Quarter: 2019Q3

REPORT INFORMATION
  Report Type: Report from Study
  Country: None (occurrence: CA)
  Receive Date: 20180823
  Receipt Date: 20190726
  Transmission Date: 20191004
  Serious: Yes (Other)
  Sender: FDA-Public Use
  Company Number: CA-ABBVIE-18K-028-2457533-00

PATIENT
  Sex: Male

DRUGS (5)
  1. NEVANAC [Concomitant]
     Active Substance: NEPAFENAC
     Indication: CATARACT
  2. LATANAPROST/TIMOLOL [Concomitant]
     Active Substance: LATANOPROST\TIMOLOL
     Indication: CATARACT
  3. AZARGA [Concomitant]
     Active Substance: BRINZOLAMIDE\TIMOLOL MALEATE
     Indication: CATARACT
  4. PREDNISONE. [Concomitant]
     Active Substance: PREDNISONE
     Indication: CATARACT
  5. HUMIRA [Suspect]
     Active Substance: ADALIMUMAB
     Indication: CROHN^S DISEASE
     Route: 058
     Dates: start: 20151222

REACTIONS (13)
  - Food intolerance [Not Recovered/Not Resolved]
  - Hepatic steatosis [Not Recovered/Not Resolved]
  - Defaecation urgency [Not Recovered/Not Resolved]
  - Visual impairment [Unknown]
  - Neuralgia [Unknown]
  - Skin papilloma [Not Recovered/Not Resolved]
  - Cataract [Not Recovered/Not Resolved]
  - Post procedural complication [Unknown]
  - Arthralgia [Not Recovered/Not Resolved]
  - Dizziness [Not Recovered/Not Resolved]
  - Macular degeneration [Not Recovered/Not Resolved]
  - Chills [Not Recovered/Not Resolved]
  - Hepatic cirrhosis [Not Recovered/Not Resolved]

NARRATIVE: CASE EVENT DATE: 2015
